FAERS Safety Report 5218031-0 (Version None)
Quarter: 2007Q1

REPORT INFORMATION
  Report Type: 
  Country: None (occurrence: None)
  Receive Date: 20061130
  Receipt Date: 20060906
  Transmission Date: 20070707
  Serious: Yes (Other)
  Sender: FDA-Public Use
  Company Number: US200607002681

PATIENT
  Age: 36 Year
  Sex: Male
  Weight: 104.3 kg

DRUGS (2)
  1. ZYPREXA [Suspect]
     Indication: MANIA
     Dosage: 10 MG, DAILY (1/D),ORAL
     Route: 048
     Dates: start: 20060501, end: 20060714
  2. TAPAZOLE (METHIMAZOLE UNKOWN FORMULATION) UNKNOWN [Concomitant]

REACTIONS (1)
  - WEIGHT INCREASED [None]
